FAERS Safety Report 17313446 (Version 1)
Quarter: 2020Q1

REPORT INFORMATION
  Report Type: Spontaneous
  Country: US (occurrence: US)
  Receive Date: 20200124
  Receipt Date: 20200124
  Transmission Date: 20200409
  Serious: No
  Sender: FDA-Public Use
  Company Number: US-AUROBINDO-AUR-APL-2019-030069

PATIENT

DRUGS (2)
  1. ECONTRA ONE-STEP [Suspect]
     Active Substance: LEVONORGESTREL
     Indication: POST COITAL CONTRACEPTION
     Dosage: UNK, 1 PILL AFTER UNPROTECTED SEX
     Route: 048
     Dates: start: 20190513
  2. ECONTRA ONE-STEP [Suspect]
     Active Substance: LEVONORGESTREL
     Dosage: UNK, TONIGHT
     Route: 048
     Dates: start: 20190515

REACTIONS (3)
  - Pyrexia [Not Recovered/Not Resolved]
  - Chills [Not Recovered/Not Resolved]
  - Vomiting [Unknown]

NARRATIVE: CASE EVENT DATE: 20190513
